FAERS Safety Report 12997555 (Version 2)
Quarter: 2016Q4

REPORT INFORMATION
  Report Type: Spontaneous
  Country: CA (occurrence: CA)
  Receive Date: 20161205
  Receipt Date: 20161213
  Transmission Date: 20170207
  Serious: Yes (Other)
  Sender: FDA-Public Use
  Company Number: CA-AMGEN-CANSP2016169812

PATIENT
  Age: 52 Year
  Sex: Female

DRUGS (6)
  1. VIT B [Concomitant]
     Active Substance: VITAMIN B
  2. PREMARIN LOW DOSE [Concomitant]
  3. CALCIUM [Concomitant]
     Active Substance: CALCIUM
     Dosage: 500, QD
  4. PROLIA [Suspect]
     Active Substance: DENOSUMAB
     Indication: PRODUCT USED FOR UNKNOWN INDICATION
     Dosage: UNK
     Route: 065
  5. ESTROGEN [Concomitant]
     Active Substance: ESTRONE\SUS SCROFA OVARY
     Dosage: ONCE TO TWICE A WEEK
  6. VITAMIN D [Concomitant]
     Active Substance: CHOLECALCIFEROL

REACTIONS (2)
  - Blister [Recovering/Resolving]
  - Skin cancer [Unknown]

NARRATIVE: CASE EVENT DATE: 20161031
